FAERS Safety Report 6722734-6 (Version None)
Quarter: 2010Q2

REPORT INFORMATION
  Report Type: 
  Country: None (occurrence: None)
  Receive Date: 20100512
  Receipt Date: 20100507
  Transmission Date: 20101027
  Serious: Yes (Hospitalization)
  Sender: FDA-Public Use
  Company Number: FR-MERCK-1004FRA00078

PATIENT
  Age: 47 Year
  Sex: Female

DRUGS (33)
  1. CANCIDAS [Suspect]
     Indication: ENTEROBACTER INFECTION
     Route: 042
     Dates: start: 20100222, end: 20100225
  2. CANCIDAS [Suspect]
     Route: 042
     Dates: start: 20100227
  3. CANCIDAS [Suspect]
     Indication: BACTEROIDES INFECTION
     Route: 042
     Dates: start: 20100222, end: 20100225
  4. CANCIDAS [Suspect]
     Route: 042
     Dates: start: 20100227
  5. AUGMENTIN '125' [Suspect]
     Indication: ENTEROBACTER INFECTION
     Route: 042
     Dates: start: 20100219, end: 20100224
  6. AUGMENTIN '125' [Suspect]
     Route: 042
     Dates: start: 20100227
  7. AUGMENTIN '125' [Suspect]
     Indication: BACTEROIDES INFECTION
     Route: 042
     Dates: start: 20100219, end: 20100224
  8. AUGMENTIN '125' [Suspect]
     Route: 042
     Dates: start: 20100227
  9. OMEPRAZOLE [Suspect]
     Route: 042
     Dates: start: 20100219, end: 20100302
  10. SUFENTA PRESERVATIVE FREE [Suspect]
     Route: 042
     Dates: start: 20100219, end: 20100302
  11. ACUPAN [Suspect]
     Route: 042
     Dates: start: 20100220, end: 20100221
  12. HUMALOG [Suspect]
     Route: 058
     Dates: start: 20100219
  13. ALPRAZOLAM [Suspect]
     Route: 042
     Dates: start: 20100220, end: 20100220
  14. LOVENOX [Suspect]
     Route: 058
     Dates: start: 20100220, end: 20100226
  15. GENTALLINE [Suspect]
     Route: 042
     Dates: start: 20100222, end: 20100223
  16. NIMBEX [Suspect]
     Route: 042
     Dates: start: 20100222, end: 20100224
  17. VECTARION [Suspect]
     Route: 042
     Dates: start: 20100222, end: 20100224
  18. KETAMINE HYDROCHLORIDE [Suspect]
     Route: 042
     Dates: start: 20100219, end: 20100219
  19. INSULIN, NEUTRAL [Suspect]
     Route: 065
     Dates: start: 20100219, end: 20100219
  20. ROCURONIUM BROMIDE [Suspect]
     Route: 042
     Dates: start: 20100219, end: 20100219
  21. TRACRIUM [Suspect]
     Route: 042
     Dates: start: 20100219, end: 20100219
  22. HYPNOVEL [Suspect]
     Route: 042
     Dates: start: 20100219, end: 20100219
  23. SIR EPHEDRIN [Suspect]
     Route: 042
     Dates: start: 20100219, end: 20100219
  24. PROPOFOL-ICI [Suspect]
     Route: 042
     Dates: start: 20100219, end: 20100302
  25. METFORMIN [Concomitant]
     Route: 065
  26. PRAVASTATIN SODIUM [Concomitant]
     Route: 065
  27. ANAFRANIL [Concomitant]
     Route: 065
  28. SERESTA [Concomitant]
     Route: 065
  29. LARGACTIL [Concomitant]
     Route: 065
  30. TARDYFERON [Concomitant]
     Route: 065
  31. TAZOCILLINE [Concomitant]
     Indication: ENTEROBACTER INFECTION
     Route: 065
     Dates: start: 20100227
  32. TAZOCILLINE [Concomitant]
     Indication: BACTEROIDES INFECTION
     Route: 065
     Dates: start: 20100227
  33. ARTICHOKE [Concomitant]
     Route: 048

REACTIONS (1)
  - STEVENS-JOHNSON SYNDROME [None]
